FAERS Safety Report 16261802 (Version 3)
Quarter: 2019Q4

REPORT INFORMATION
  Report Type: Spontaneous
  Country: US (occurrence: US)
  Receive Date: 20190501
  Receipt Date: 20191202
  Transmission Date: 20200122
  Serious: Yes (Other)
  Sender: FDA-Public Use
  Company Number: US-ASTRAZENECA-2019SE10232

PATIENT
  Sex: Female
  Weight: 88 kg

DRUGS (29)
  1. PRILOSEC [Suspect]
     Active Substance: OMEPRAZOLE MAGNESIUM
     Indication: GASTROOESOPHAGEAL REFLUX DISEASE
     Route: 048
     Dates: start: 2014
  2. LANTUS [Concomitant]
     Active Substance: INSULIN GLARGINE
  3. COUMADIN [Concomitant]
     Active Substance: WARFARIN SODIUM
  4. COLACE [Concomitant]
     Active Substance: DOCUSATE SODIUM
  5. FUROSEMIDE. [Concomitant]
     Active Substance: FUROSEMIDE
  6. WARFARIN [Concomitant]
     Active Substance: WARFARIN
  7. RENVELA [Concomitant]
     Active Substance: SEVELAMER CARBONATE
  8. FLUTICASONE. [Concomitant]
     Active Substance: FLUTICASONE
  9. ATIVAN [Concomitant]
     Active Substance: LORAZEPAM
  10. ALLOPURINOL. [Concomitant]
     Active Substance: ALLOPURINOL
  11. PRILOSEC [Suspect]
     Active Substance: OMEPRAZOLE MAGNESIUM
     Indication: GASTROOESOPHAGEAL REFLUX DISEASE
     Route: 048
  12. LASIX [Concomitant]
     Active Substance: FUROSEMIDE
  13. PERCOCET [Concomitant]
     Active Substance: ACETAMINOPHEN\OXYCODONE HYDROCHLORIDE
  14. LANTUS SOLOSTAR [Concomitant]
     Active Substance: INSULIN GLARGINE
  15. KLOR-CAN [Concomitant]
  16. COLACE [Concomitant]
     Active Substance: DOCUSATE SODIUM
  17. LIPITOR [Concomitant]
     Active Substance: ATORVASTATIN CALCIUM
  18. DILTIAZEM. [Concomitant]
     Active Substance: DILTIAZEM
  19. PRILOSEC [Suspect]
     Active Substance: OMEPRAZOLE MAGNESIUM
     Indication: GASTROOESOPHAGEAL REFLUX DISEASE
     Route: 048
  20. AUGMENTIN [Concomitant]
     Active Substance: AMOXICILLIN\CLAVULANATE POTASSIUM
  21. ALPRAZOLAM. [Concomitant]
     Active Substance: ALPRAZOLAM
  22. AMOXICILLIN. [Concomitant]
     Active Substance: AMOXICILLIN
  23. ALLOPURINOL. [Concomitant]
     Active Substance: ALLOPURINOL
  24. HYCODAN [Concomitant]
     Active Substance: HOMATROPINE METHYLBROMIDE\HYDROCODONE BITARTRATE
  25. NOVOLOG [Concomitant]
     Active Substance: INSULIN ASPART
  26. VENTOLIN [Concomitant]
     Active Substance: ALBUTEROL SULFATE
  27. HYDRALAZINE [Concomitant]
     Active Substance: HYDRALAZINE HYDROCHLORIDE
  28. PRAVASTATIN. [Concomitant]
     Active Substance: PRAVASTATIN
  29. LOSARTAN. [Concomitant]
     Active Substance: LOSARTAN

REACTIONS (5)
  - Chronic kidney disease [Unknown]
  - Renal failure [Unknown]
  - End stage renal disease [Unknown]
  - Rebound acid hypersecretion [Unknown]
  - Acute kidney injury [Unknown]
